FAERS Safety Report 11615999 (Version 1)
Quarter: 2015Q4

REPORT INFORMATION
  Report Type: Spontaneous
  Country: US (occurrence: None)
  Receive Date: 20151008
  Receipt Date: 20151008
  Transmission Date: 20160304
  Serious: Yes (Life-Threatening)
  Sender: FDA-Public Use
  Company Number: None

PATIENT
  Age: 82 Year
  Sex: Male
  Weight: 190 kg

DRUGS (14)
  1. FAMOTIDINE. [Concomitant]
     Active Substance: FAMOTIDINE
  2. FINASTERIDE. [Concomitant]
     Active Substance: FINASTERIDE
  3. GABAPENTIN. [Concomitant]
     Active Substance: GABAPENTIN
  4. NITROGLYCERIN LINGAL SPRAY [Concomitant]
  5. VITAMIN (MULTIPLE) [Concomitant]
  6. COREG [Concomitant]
     Active Substance: CARVEDILOL
  7. CITALOPRAM [Concomitant]
     Active Substance: CITALOPRAM HYDROBROMIDE
  8. ZOCOR [Concomitant]
     Active Substance: SIMVASTATIN
  9. ALLEGRA [Concomitant]
     Active Substance: FEXOFENADINE HYDROCHLORIDE
  10. ASPIRIN. [Concomitant]
     Active Substance: ASPIRIN
  11. LISINOPRIL. [Suspect]
     Active Substance: LISINOPRIL
     Indication: BLOOD PRESSURE MEASUREMENT
     Dosage: SEVERAL YEARS
     Route: 048
     Dates: end: 20150917
  12. HYDROCHLOROTHIAZIDE. [Concomitant]
     Active Substance: HYDROCHLOROTHIAZIDE
  13. ZOLPIDEM TARTRATE. [Concomitant]
     Active Substance: ZOLPIDEM TARTRATE
  14. TAMSULOSIN [Concomitant]
     Active Substance: TAMSULOSIN

REACTIONS (3)
  - Gait disturbance [None]
  - Swollen tongue [None]
  - Activities of daily living impaired [None]

NARRATIVE: CASE EVENT DATE: 20150901
